FAERS Safety Report 5032664-6 (Version None)
Quarter: 2006Q2

REPORT INFORMATION
  Report Type: 
  Country: None (occurrence: None)
  Receive Date: 20060620
  Receipt Date: 20060620
  Transmission Date: 20061013
  Serious: Yes (Hospitalization)
  Sender: FDA-Public Use
  Company Number: None

PATIENT
  Age: 42 Year
  Sex: Female
  Weight: 49.8957 kg

DRUGS (1)
  1. BETASERON [Suspect]
     Indication: MULTIPLE SCLEROSIS
     Dosage: AMT IN PRODUCT 3 TIMES SQ
     Route: 058
     Dates: start: 19920412, end: 19920415

REACTIONS (11)
  - CARDIAC FAILURE [None]
  - HEPATOCELLULAR DAMAGE [None]
  - HYPOTENSION [None]
  - INJECTION SITE RASH [None]
  - MITRAL VALVE DISEASE [None]
  - PYREXIA [None]
  - RASH [None]
  - RENAL DISORDER [None]
  - RHEUMATOID ARTHRITIS [None]
  - SYSTEMIC LUPUS ERYTHEMATOSUS [None]
  - VISUAL ACUITY REDUCED [None]
